FAERS Safety Report 7571829-6 (Version None)
Quarter: 2011Q2

REPORT INFORMATION
  Report Type: 
  Country: None (occurrence: None)
  Receive Date: 20110525
  Receipt Date: 20110204
  Transmission Date: 20111010
  Serious: No
  Sender: FDA-Public Use
  Company Number: 322849

PATIENT
  Age: 71 Year
  Sex: Male

DRUGS (1)
  1. VICTOZA [Suspect]
     Indication: DIABETES MELLITUS
     Dosage: 0.6 MG, QD, SUBCUTANEOUS
     Route: 058
     Dates: start: 20110201

REACTIONS (1)
  - BLOOD GLUCOSE INCREASED [None]
